FAERS Safety Report 12901428 (Version 1)
Quarter: 2016Q4

REPORT INFORMATION
  Report Type: Spontaneous
  Country: FR (occurrence: FR)
  Receive Date: 20161101
  Receipt Date: 20161101
  Transmission Date: 20170207
  Serious: Yes (Life-Threatening, Hospitalization, Other)
  Sender: FDA-Public Use
  Company Number: FR-BRISTOL-MYERS SQUIBB COMPANY-BMS-2016-090920

PATIENT
  Age: 70 Year
  Sex: Female

DRUGS (23)
  1. LASILIX                            /00032601/ [Suspect]
     Active Substance: FUROSEMIDE
     Indication: HYPERTENSION
     Dosage: 40 MG, BID
     Route: 048
  2. INEXIUM                            /01479302/ [Suspect]
     Active Substance: ESOMEPRAZOLE MAGNESIUM
     Indication: GASTRITIS PROPHYLAXIS
     Dosage: 1 DF, TID
     Route: 048
  3. KALEORID LP [Suspect]
     Active Substance: POTASSIUM CHLORIDE
     Indication: HYPOKALAEMIA
     Dosage: 1 DF, QID
     Route: 048
  4. SOVALDI [Suspect]
     Active Substance: SOFOSBUVIR
     Indication: HEPATITIS C
     Dosage: 400 MG, UNK
     Route: 048
     Dates: start: 20140715, end: 20150115
  5. RAMIPRIL. [Suspect]
     Active Substance: RAMIPRIL
     Indication: HYPERTENSION
     Dosage: 5 MG, BID
     Route: 048
     Dates: start: 20151126
  6. NATISPRAY [Suspect]
     Active Substance: NITROGLYCERIN
     Indication: ANGINA PECTORIS
     Route: 065
  7. ADALAT [Suspect]
     Active Substance: NIFEDIPINE
     Indication: RAYNAUD^S PHENOMENON
     Dosage: 1 DF, BID
     Route: 048
     Dates: start: 20151102, end: 20151123
  8. ADENURIC [Suspect]
     Active Substance: FEBUXOSTAT
     Indication: HYPERURICAEMIA
     Dosage: 2 DF, QD
     Route: 048
  9. GAVISCON                           /00237601/ [Suspect]
     Active Substance: ALUMINUM HYDROXIDE\MAGNESIUM CARBONATE
     Indication: GASTROINTESTINAL DISORDER
     Dosage: 1 DF, TID
     Route: 048
  10. ACTISKENAN [Suspect]
     Active Substance: MORPHINE SULFATE
     Indication: PAIN
     Dosage: 1 DF, BID
     Route: 048
  11. DUROGESIC [Suspect]
     Active Substance: FENTANYL
     Indication: PAIN
     Dosage: 1 DF, UNK
     Route: 062
  12. TEMERIT [Suspect]
     Active Substance: NEBIVOLOL
     Indication: PALPITATIONS
     Dosage: 1 DF, BID
     Route: 048
  13. ALDACTONE [Suspect]
     Active Substance: SPIRONOLACTONE
     Indication: HYPERTENSION
     Dosage: 25 MG, UNK
     Route: 048
     Dates: end: 20151215
  14. LOPERAMIDE HYDROCHLORIDE. [Suspect]
     Active Substance: LOPERAMIDE HYDROCHLORIDE
     Indication: DIARRHOEA
     Dosage: 2 DF, TID
     Route: 048
  15. DAKLINZA [Suspect]
     Active Substance: DACLATASVIR
     Indication: HEPATITIS C
     Dosage: UNK UNK, QD
     Route: 048
     Dates: start: 20140715, end: 20150115
  16. DOXYCYCLINE. [Suspect]
     Active Substance: DOXYCYCLINE
     Indication: PULMONARY SARCOIDOSIS
     Dosage: 100 MG, BID
     Route: 048
  17. ALPRAZOLAM. [Suspect]
     Active Substance: ALPRAZOLAM
     Indication: ANXIETY
     Dosage: 0.5 MG, BID
     Route: 048
  18. ILARIS [Suspect]
     Active Substance: CANAKINUMAB
     Indication: GOUT
     Dosage: UNK
     Route: 042
     Dates: start: 201501, end: 201507
  19. TIORFAN [Suspect]
     Active Substance: RACECADOTRIL
     Indication: DIARRHOEA
     Dosage: 3 DF, BID
     Route: 048
  20. ZOPHREN                            /00955301/ [Suspect]
     Active Substance: ONDANSETRON
     Indication: VOMITING
     Dosage: 1 DF, BID
     Route: 048
  21. LANTUS [Suspect]
     Active Substance: INSULIN GLARGINE
     Indication: TYPE 1 DIABETES MELLITUS
     Dosage: 25 IU, QD
     Route: 058
  22. TARDYFERON [Suspect]
     Active Substance: FERROUS SULFATE
     Indication: ANAEMIA
     Dosage: 1 DF, BID
     Route: 048
  23. INEGY [Suspect]
     Active Substance: EZETIMIBE\SIMVASTATIN
     Indication: DYSLIPIDAEMIA
     Dosage: 1 DF, QD
     Route: 048

REACTIONS (3)
  - Acute coronary syndrome [Recovered/Resolved]
  - Troponin increased [Recovered/Resolved]
  - Angina unstable [Recovered/Resolved]

NARRATIVE: CASE EVENT DATE: 20160822
